FAERS Safety Report 9378149 (Version 4)
Quarter: 2014Q1

REPORT INFORMATION
  Report Type: Spontaneous
  Country: GB (occurrence: GB)
  Receive Date: 20130701
  Receipt Date: 20140224
  Transmission Date: 20141002
  Serious: Yes (Hospitalization)
  Sender: FDA-Public Use
  Company Number: GB-GLAXOSMITHKLINE-B0902592A

PATIENT
  Age: 44 Year
  Sex: Male

DRUGS (6)
  1. AVANDIA [Suspect]
     Indication: TYPE 2 DIABETES MELLITUS
     Dosage: 4MG PER DAY
     Route: 065
  2. AVANDAMET [Suspect]
     Indication: TYPE 2 DIABETES MELLITUS
  3. LISINOPRIL [Concomitant]
  4. AMLODIPINE [Concomitant]
  5. METFORMIN [Concomitant]
  6. LOSARTAN [Concomitant]

REACTIONS (3)
  - Acute myocardial infarction [Unknown]
  - Myocardial infarction [Unknown]
  - Acute myocardial infarction [Unknown]
